FAERS Safety Report 19260063 (Version 3)
Quarter: 2021Q2

REPORT INFORMATION
  Report Type: Report from Study
  Country: US (occurrence: US)
  Receive Date: 20210514
  Receipt Date: 20210615
  Transmission Date: 20210717
  Serious: Yes (Other)
  Sender: FDA-Public Use
  Company Number: US-GILEAD-2021-0530235

PATIENT
  Age: 86 Year
  Sex: Female

DRUGS (4)
  1. TYVASO [Suspect]
     Active Substance: TREPROSTINIL
     Indication: PRODUCT USED FOR UNKNOWN INDICATION
     Route: 065
  2. AMBRISENTAN [Suspect]
     Active Substance: AMBRISENTAN
     Indication: PULMONARY HYPERTENSION
     Dosage: 10 MG, QD
     Route: 048
     Dates: start: 20201110
  3. ADCIRCA [Concomitant]
     Active Substance: TADALAFIL
  4. TADALAFIL. [Concomitant]
     Active Substance: TADALAFIL

REACTIONS (8)
  - Fall [Unknown]
  - Injury [Unknown]
  - Syncope [Unknown]
  - Chest discomfort [Not Recovered/Not Resolved]
  - Loss of consciousness [Recovered/Resolved]
  - Blood pressure decreased [Unknown]
  - Skin laceration [Unknown]
  - Pulmonary arterial pressure decreased [Unknown]

NARRATIVE: CASE EVENT DATE: 20210511
